FAERS Safety Report 20024815 (Version 2)
Quarter: 2021Q4

REPORT INFORMATION
  Report Type: Spontaneous
  Country: SE (occurrence: SE)
  Receive Date: 20211102
  Receipt Date: 20211115
  Transmission Date: 20220303
  Serious: Yes (Other)
  Sender: FDA-Public Use
  Company Number: None

PATIENT
  Age: 48 Year
  Sex: Female
  Weight: 55 kg

DRUGS (2)
  1. PROVERA [Interacting]
     Active Substance: MEDROXYPROGESTERONE ACETATE
     Indication: Endometriosis
     Dosage: 10 MG, 2X/DAY (1 TABLET MORNING AND EVENING)
     Route: 048
     Dates: start: 20150501, end: 20210927
  2. MIDODRINE HYDROCHLORIDE [Interacting]
     Active Substance: MIDODRINE HYDROCHLORIDE
     Indication: Orthostatic hypotension
     Dosage: 2.5 MG, 3X/DAY (1 TABLET 3 TIMES DAILY)
     Route: 048
     Dates: start: 20200520

REACTIONS (2)
  - Drug ineffective [Recovered/Resolved with Sequelae]
  - Drug interaction [Recovered/Resolved with Sequelae]

NARRATIVE: CASE EVENT DATE: 20200520
